FAERS Safety Report 5213573-6 (Version None)
Quarter: 2007Q1

REPORT INFORMATION
  Report Type: 
  Country: None (occurrence: None)
  Receive Date: 20070119
  Receipt Date: 20070108
  Transmission Date: 20070707
  Serious: Yes (Hospitalization)
  Sender: FDA-Public Use
  Company Number: 2007UW01040

PATIENT
  Age: 46 Year
  Sex: Male

DRUGS (5)
  1. ROSUVASTATIN [Suspect]
     Indication: DYSLIPIDAEMIA
     Route: 048
  2. ABT 335 [Suspect]
     Route: 048
     Dates: start: 20060511, end: 20060701
  3. ABT 335 [Suspect]
     Route: 048
     Dates: start: 20060704
  4. LOTREL [Concomitant]
     Dosage: 10/20 1 TAB
     Route: 048
     Dates: start: 20050101
  5. VICODIN [Concomitant]
     Indication: JOINT INJURY
     Dosage: 1 OR 2 EVERY 4 TO 6 HRS.
     Route: 048
     Dates: start: 20060619, end: 20060701

REACTIONS (1)
  - GASTROOESOPHAGEAL REFLUX DISEASE [None]
